FAERS Safety Report 7394931-0 (Version None)
Quarter: 2011Q2

REPORT INFORMATION
  Report Type: 
  Country: None (occurrence: None)
  Receive Date: 20110405
  Receipt Date: 20110328
  Transmission Date: 20111010
  Serious: Yes (Hospitalization)
  Sender: FDA-Public Use
  Company Number: B0710671A

PATIENT
  Age: 57 Year
  Sex: Male

DRUGS (1)
  1. SERETIDE [Suspect]
     Indication: ASTHMA
     Route: 065
     Dates: end: 20100101

REACTIONS (8)
  - BLOOD PRESSURE INCREASED [None]
  - DIABETES MELLITUS [None]
  - CHEST DISCOMFORT [None]
  - ANXIETY [None]
  - ARRHYTHMIA [None]
  - BACK PAIN [None]
  - CARDIAC FAILURE [None]
  - ASTHENIA [None]
